FAERS Safety Report 7611471-1 (Version None)
Quarter: 2011Q3

REPORT INFORMATION
  Report Type: 
  Country: None (occurrence: None)
  Receive Date: 20110715
  Receipt Date: 20110630
  Transmission Date: 20111222
  Serious: Yes (Other)
  Sender: FDA-Public Use
  Company Number: US-BAYER-2011-058860

PATIENT
  Sex: Male

DRUGS (6)
  1. VIAGRA [Suspect]
     Indication: PRODUCT USED FOR UNKNOWN INDICATION
     Dosage: 50 MG, UNK
  2. CARVEDILOL [Suspect]
     Dosage: 25 MG, BID
  3. SIMVASTATIN [Suspect]
     Dosage: 20 MG, UNK
  4. HYDROCHLOROTHIAZIDE [Suspect]
  5. ASPIRIN [Suspect]
     Dosage: 81 MG, UNK
  6. DIOVAN [Suspect]
     Dosage: 320 MG, HS

REACTIONS (1)
  - RENAL IMPAIRMENT [None]
